FAERS Safety Report 8990147 (Version 1)
Quarter: 2012Q4

REPORT INFORMATION
  Report Type: 
  Country: US (occurrence: US)
  Receive Date: 20121228
  Receipt Date: 20121228
  Transmission Date: 20130627
  Serious: No
  Sender: FDA-Public Use
  Company Number: US-PFIZER INC-2012331935

PATIENT
  Age: 71 Year
  Sex: Male
  Weight: 81.63 kg

DRUGS (6)
  1. PRISTIQ [Suspect]
     Indication: DEPRESSION
     Dosage: 50 mg, 1x/day
     Route: 048
     Dates: start: 2010, end: 2010
  2. PRISTIQ [Suspect]
     Dosage: 100 mg, 1x/day
     Route: 048
     Dates: start: 2010, end: 2010
  3. PRISTIQ [Suspect]
     Dosage: 75 mg, 1x/day
     Route: 048
     Dates: start: 2010, end: 2012
  4. PRISTIQ [Suspect]
     Dosage: 100 mg, 1x/day
     Route: 048
     Dates: start: 2012, end: 2012
  5. PRISTIQ [Suspect]
     Dosage: 150 mg, 1x/day
     Route: 048
     Dates: start: 201212
  6. COREG [Concomitant]
     Indication: BLOOD PRESSURE HIGH
     Dosage: UNK

REACTIONS (1)
  - Drug ineffective [Not Recovered/Not Resolved]
